FAERS Safety Report 8253316-5 (Version None)
Quarter: 2012Q2

REPORT INFORMATION
  Report Type: 
  Country: None (occurrence: None)
  Receive Date: 20120402
  Receipt Date: 20120308
  Transmission Date: 20120825
  Serious: No
  Sender: FDA-Public Use
  Company Number: US-AMGEN-USASP2012015304

PATIENT
  Sex: Female

DRUGS (2)
  1. EFFEXOR [Concomitant]
     Dosage: UNK
  2. ENBREL [Suspect]
     Indication: RHEUMATOID ARTHRITIS
     Dosage: 50 MG, QWK

REACTIONS (6)
  - INTERVERTEBRAL DISC PROTRUSION [None]
  - RHEUMATOID ARTHRITIS [None]
  - CERVICOBRACHIAL SYNDROME [None]
  - CARPAL TUNNEL SYNDROME [None]
  - PARAESTHESIA [None]
  - HYPOAESTHESIA [None]
